FAERS Safety Report 21540290 (Version 8)
Quarter: 2023Q1

REPORT INFORMATION
  Report Type: Report from Study
  Country: IL (occurrence: None)
  Receive Date: 20221102
  Receipt Date: 20230321
  Transmission Date: 20230418
  Serious: Yes (Hospitalization)
  Sender: FDA-Public Use
  Company Number: IL-ROCHE-3208082

PATIENT
  Age: 82 Year
  Sex: Female
  Weight: 71.9 kg

DRUGS (8)
  1. MOSUNETUZUMAB [Suspect]
     Active Substance: MOSUNETUZUMAB
     Indication: Diffuse large B-cell lymphoma
     Dosage: ON 25/OCT/2022 5:35 PM, PATIENT RECEIVED MOST RECENT DOSE OF MOSUNETUZUMAB PRIOR TO AE/SAE 5 MG.
     Route: 058
     Dates: start: 20221025
  2. POLATUZUMAB VEDOTIN [Suspect]
     Active Substance: POLATUZUMAB VEDOTIN
     Indication: Diffuse large B-cell lymphoma
     Dosage: ON 25/OCT/2022, PATIENT RECEIVED MOST RECENT DOSE OF POLATUZUMAB VEDOTIN PRIOR TO AE/SAE 140 MG.
     Route: 042
     Dates: start: 20221025
  3. NEXIUM [Concomitant]
     Active Substance: ESOMEPRAZOLE MAGNESIUM
     Route: 048
     Dates: end: 20221129
  4. LERCANIDIPINE HYDROCHLORIDE [Concomitant]
     Active Substance: LERCANIDIPINE HYDROCHLORIDE
     Route: 048
  5. ASPIRIN [Concomitant]
     Active Substance: ASPIRIN
     Route: 048
  6. LAMIVUDINE [Concomitant]
     Active Substance: LAMIVUDINE
     Route: 048
  7. DEXAMETHASONE [Concomitant]
     Active Substance: DEXAMETHASONE
     Route: 042
     Dates: start: 20221025, end: 20221025
  8. ACAMOL (ISRAEL) [Concomitant]
     Dates: start: 20221025, end: 20221025

REACTIONS (1)
  - Cytokine release syndrome [Recovered/Resolved]

NARRATIVE: CASE EVENT DATE: 20221026
